FAERS Safety Report 24671161 (Version 2)
Quarter: 2024Q4

REPORT INFORMATION
  Report Type: Spontaneous
  Country: AU (occurrence: AU)
  Receive Date: 20241127
  Receipt Date: 20241202
  Transmission Date: 20250114
  Serious: Yes (Death, Hospitalization)
  Sender: MYLAN
  Company Number: AU-MYLANLABS-2024M1105914

PATIENT
  Age: 45 Year
  Sex: Male

DRUGS (2)
  1. CLOZARIL [Suspect]
     Active Substance: CLOZAPINE
     Indication: Schizophrenia
     Dosage: 450 MILLIGRAM
     Route: 048
     Dates: start: 20220428, end: 20241010
  2. CLOZARIL [Suspect]
     Active Substance: CLOZAPINE
     Dosage: UNK (RECOMMENCED)
     Route: 048
     Dates: start: 2024

REACTIONS (3)
  - Death [Fatal]
  - Hospitalisation [Unknown]
  - Therapy interrupted [Recovered/Resolved]

NARRATIVE: CASE EVENT DATE: 20241010
